FAERS Safety Report 8836591 (Version 3)
Quarter: 2013Q2

REPORT INFORMATION
  Report Type: Spontaneous
  Country: JP (occurrence: None)
  Receive Date: 20121009
  Receipt Date: 20130618
  Transmission Date: 20140414
  Serious: Yes (Hospitalization)
  Sender: FDA-Public Use
  Company Number: TCI2012A03761

PATIENT
  Age: 82 Year
  Sex: Female

DRUGS (5)
  1. TAKEPRON OD [Suspect]
     Indication: PROPHYLAXIS AGAINST GASTROINTESTINAL ULCER
     Route: 048
     Dates: start: 20110519, end: 20120106
  2. BAYASPIRIN [Concomitant]
  3. NORVASC OD (AMLODIPINE BESILATE) [Concomitant]
  4. PREMINENT (HYDROCHLOROTHIAZIDE, LOSARTAN POTASSIUM) [Concomitant]
  5. EURAX H CREAM (HYDROCORTISONE, CROTAMITON) [Concomitant]

REACTIONS (6)
  - Cardiac failure [None]
  - Brain natriuretic peptide increased [None]
  - Aortic valve stenosis [None]
  - Nausea [None]
  - Vomiting [None]
  - Condition aggravated [None]
